FAERS Safety Report 8789444 (Version 1)
Quarter: 2012Q4

REPORT INFORMATION
  Report Type: Spontaneous
  Country: US (occurrence: None)
  Receive Date: 20120905
  Receipt Date: 20120905
  Transmission Date: 20130627
  Serious: Yes (Other)
  Sender: FDA-Public Use
  Company Number: 2012MA010373

PATIENT
  Age: 47 Year
  Sex: Female

DRUGS (11)
  1. TRIAMCINOLONE ACETONIDE [Suspect]
     Indication: BACK PAIN
     Dosage: 80 mg;x3;ed
     Route: 008
  2. TRIAMCINOLONE ACETONIDE [Suspect]
     Indication: LEG PAIN
     Dosage: 80 mg;x3;ed
     Route: 008
  3. RITONAVIR [Suspect]
     Indication: HIV INFECTION
  4. ATAZANAVIR [Concomitant]
  5. EMTRICITABINE [Concomitant]
  6. TENOFOVIR [Concomitant]
  7. SERTRALINE [Concomitant]
  8. GABAPENTIN [Concomitant]
  9. GEMFIBROZIL [Concomitant]
  10. ATORVASTATIN [Concomitant]
  11. AMITRIPTYLINE [Concomitant]

REACTIONS (12)
  - Diabetes mellitus inadequate control [None]
  - Areflexia [None]
  - Spinal osteoarthritis [None]
  - Intervertebral disc protrusion [None]
  - Lumbar spinal stenosis [None]
  - Back pain [None]
  - Aphthous stomatitis [None]
  - Hyperlipidaemia [None]
  - Diabetes mellitus [None]
  - Diarrhoea [None]
  - Pain in extremity [None]
  - Cushing^s syndrome [None]
